FAERS Safety Report 9952741 (Version 1)
Quarter: 2014Q1

REPORT INFORMATION
  Report Type: Spontaneous
  Country: US (occurrence: US)
  Receive Date: 20140304
  Receipt Date: 20140304
  Transmission Date: 20141002
  Serious: No
  Sender: FDA-Public Use
  Company Number: US-AMGEN-USASP2014000620

PATIENT
  Age: 31 Year
  Sex: Female
  Weight: 49.89 kg

DRUGS (6)
  1. ENBREL [Suspect]
     Indication: PRODUCT USED FOR UNKNOWN INDICATION
     Dosage: 50 MG, QWK
     Route: 058
     Dates: start: 201312
  2. MEDROL                             /00049601/ [Concomitant]
     Dosage: 8 MG, UNK
  3. PROTONIX [Concomitant]
     Dosage: 20 MG, UNK
  4. VOLTAREN                           /00372301/ [Concomitant]
     Dosage: 50 MG, UNK, EC
  5. TRAMADOL HCL [Concomitant]
     Dosage: 50 MG, UNK
  6. FLINTSTONES COMPLETE               /02265901/ [Concomitant]
     Dosage: UNK

REACTIONS (4)
  - Chills [Unknown]
  - Night sweats [Unknown]
  - Chest pain [Unknown]
  - Upper respiratory tract infection [Recovered/Resolved]
